FAERS Safety Report 5271124-4 (Version None)
Quarter: 2007Q1

REPORT INFORMATION
  Report Type: 
  Country: None (occurrence: None)
  Receive Date: 20070315
  Receipt Date: 20070302
  Transmission Date: 20070707
  Serious: Yes (Death, Life-Threatening, Hospitalization)
  Sender: FDA-Public Use
  Company Number: 2005-08-0707

PATIENT
  Age: 48 Year
  Sex: Male
  Weight: 98 kg

DRUGS (9)
  1. POSACONAZOLE [Suspect]
     Indication: SINUSITIS FUNGAL
     Dosage: 400 MG; BID; PO
     Route: 048
     Dates: start: 20050804, end: 20050807
  2. MORPHINE [Suspect]
     Indication: PAIN
     Dosage: SEE IMAGE
     Dates: start: 20050715
  3. ACYCLOVIR [Suspect]
     Indication: HERPES VIRUS INFECTION
     Dosage: 750 MG; IV
     Route: 042
     Dates: start: 20050709
  4. ACYCLOVIR [Suspect]
     Indication: PROPHYLAXIS
     Dosage: 750 MG; IV
     Route: 042
     Dates: start: 20050709
  5. TAXOBACTAM/PIPERACILLIN (NO PREF. NAME) [Suspect]
     Indication: PNEUMONIA
     Dosage: 4.5 GM; TID
     Dates: start: 20050803
  6. PROPOFOL [Suspect]
     Indication: SEDATION
     Dosage: IV
     Route: 042
     Dates: start: 20050805
  7. ABELCET [Concomitant]
  8. VORICONAZOLE [Concomitant]
  9. DIFLUCAN [Concomitant]

REACTIONS (21)
  - ARTERIOSCLEROSIS [None]
  - ARTERIOSCLEROSIS CORONARY ARTERY [None]
  - BRADYCARDIA [None]
  - BRADYPNOEA [None]
  - BRAIN STEM SYNDROME [None]
  - CARDIOVASCULAR DISORDER [None]
  - CEREBRAL DISORDER [None]
  - COMA [None]
  - CONDITION AGGRAVATED [None]
  - HYPOTENSION [None]
  - ILIAC ARTERY THROMBOSIS [None]
  - INTRACARDIAC THROMBUS [None]
  - JAUNDICE [None]
  - LIPOMATOSIS [None]
  - LIVER DISORDER [None]
  - PULMONARY ALVEOLAR HAEMORRHAGE [None]
  - PULMONARY EMBOLISM [None]
  - RESPIRATORY FAILURE [None]
  - SEPSIS [None]
  - TRACHEOBRONCHITIS [None]
  - VENTRICULAR HYPERTROPHY [None]
